FAERS Safety Report 19593371 (Version 1)
Quarter: 2021Q3

REPORT INFORMATION
  Report Type: Spontaneous
  Country: US (occurrence: US)
  Receive Date: 20210720
  Receipt Date: 20210720
  Transmission Date: 20211014
  Serious: Yes (Other)
  Sender: FDA-Public Use
  Company Number: None

PATIENT
  Age: 52 Year
  Sex: Female
  Weight: 109.8 kg

DRUGS (3)
  1. BIEST [Suspect]
     Active Substance: ESTRADIOL\ESTRIOL
     Indication: FULL BLOOD COUNT ABNORMAL
     Dosage: ?          QUANTITY:1 ML;?
     Route: 061
     Dates: start: 20200718, end: 20200807
  2. DHEA [Suspect]
     Active Substance: PRASTERONE
  3. PROGESTERONE 50MG CAPSULE [Suspect]
     Active Substance: PROGESTERONE
     Indication: FULL BLOOD COUNT ABNORMAL

REACTIONS (1)
  - Cardiac failure [None]

NARRATIVE: CASE EVENT DATE: 20200808
